FAERS Safety Report 4527882-7 (Version None)
Quarter: 2004Q4

REPORT INFORMATION
  Report Type: 
  Country: None (occurrence: None)
  Receive Date: 20041123
  Receipt Date: 20031113
  Transmission Date: 20050328
  Serious: Yes (Other)
  Sender: FDA-Public Use
  Company Number: HQWYE091814NOV03

PATIENT

DRUGS (1)
  1. ZOSYN [Suspect]
     Indication: OSTEOMYELITIS
     Dosage: 4.5 G 1X PER 8 HR, INTRAVENOUS
     Route: 042

REACTIONS (3)
  - EOSINOPHILIA [None]
  - PANCYTOPENIA [None]
  - PYREXIA [None]
